FAERS Safety Report 8510924-1 (Version None)
Quarter: 2012Q3

REPORT INFORMATION
  Report Type: 
  Country: None (occurrence: None)
  Receive Date: 20120716
  Receipt Date: 20120702
  Transmission Date: 20120928
  Serious: No
  Sender: FDA-Public Use
  Company Number: US-JNJFOC-20120701437

PATIENT
  Sex: Female
  Weight: 115.67 kg

DRUGS (4)
  1. DURAGESIC-100 [Suspect]
     Route: 062
     Dates: start: 20110101
  2. DURAGESIC-100 [Suspect]
     Route: 062
     Dates: start: 20110101
  3. DURAGESIC-100 [Suspect]
     Indication: PAIN
     Route: 062
     Dates: start: 20090101, end: 20110101
  4. DURAGESIC-100 [Suspect]
     Route: 062
     Dates: start: 20090101, end: 20090101

REACTIONS (10)
  - WRONG TECHNIQUE IN DRUG USAGE PROCESS [None]
  - INADEQUATE ANALGESIA [None]
  - PRODUCT QUALITY ISSUE [None]
  - DRUG EFFECT DECREASED [None]
  - FEELING ABNORMAL [None]
  - HEADACHE [None]
  - DIZZINESS [None]
  - NAUSEA [None]
  - MUSCULAR WEAKNESS [None]
  - FALL [None]
